FAERS Safety Report 6402526-8 (Version None)
Quarter: 2009Q4

REPORT INFORMATION
  Report Type: 
  Country: None (occurrence: None)
  Receive Date: 20091009
  Receipt Date: 20090930
  Transmission Date: 20100525
  Serious: Yes (Other)
  Sender: FDA-Public Use
  Company Number: ADR34512009

PATIENT
  Age: 63 Year
  Sex: Female

DRUGS (3)
  1. CIPROFLOXACIN [Suspect]
  2. VORICONAZOLE [Concomitant]
  3. BRONCHIECTASIS [Concomitant]

REACTIONS (2)
  - DRUG INTERACTION [None]
  - HALLUCINATION [None]
